FAERS Safety Report 8420120-4 (Version None)
Quarter: 2012Q2

REPORT INFORMATION
  Report Type: 
  Country: None (occurrence: None)
  Receive Date: 20120607
  Receipt Date: 20120523
  Transmission Date: 20120825
  Serious: No
  Sender: FDA-Public Use
  Company Number: US-ASTRAZENECA-2012SE33473

PATIENT
  Age: 60 Year
  Sex: Male
  Weight: 123.4 kg

DRUGS (4)
  1. CRESTOR [Suspect]
     Indication: HYPERLIPIDAEMIA
     Route: 048
     Dates: start: 20090801
  2. ASPIRIN [Concomitant]
  3. DIOVAN [Concomitant]
  4. NEXIUM [Suspect]
     Route: 048

REACTIONS (1)
  - AMNESIA [None]
